FAERS Safety Report 19658869 (Version 1)
Quarter: 2021Q3

REPORT INFORMATION
  Report Type: Spontaneous
  Country: CA (occurrence: CA)
  Receive Date: 20210804
  Receipt Date: 20210804
  Transmission Date: 20211014
  Serious: Yes (Hospitalization, Other)
  Sender: FDA-Public Use
  Company Number: CA-ANIPHARMA-2021-CA-001058

PATIENT
  Age: 10 Year
  Sex: Male

DRUGS (5)
  1. HYDROMORPHONE [Suspect]
     Active Substance: HYDROMORPHONE
     Indication: FEMUR FRACTURE
     Dosage: 1 MG EVERY 4 HOURS AS NEEDED
  2. DESMOPRESSIN [Concomitant]
     Active Substance: DESMOPRESSIN
     Dosage: 1.6 MG 4 TIMES DAILY
     Route: 048
  3. GROWTH HORMONE [Concomitant]
     Active Substance: SOMATROPIN
     Dosage: 1.3 MG DAILY
     Route: 058
  4. IBUPROFEN (NON?SPECIFIC) [Suspect]
     Active Substance: IBUPROFEN
     Indication: FEMUR FRACTURE
     Dosage: 600 MG EVERY 6 HOURS AS NEEDED
  5. HYDROCORTISONE. [Concomitant]
     Active Substance: HYDROCORTISONE
     Dosage: 6 MG 2 TIMES DAILY
     Route: 048

REACTIONS (2)
  - Hyponatraemia [Recovered/Resolved]
  - Seizure [Recovered/Resolved]
